FAERS Safety Report 12207146 (Version 1)
Quarter: 2016Q1

REPORT INFORMATION
  Report Type: Spontaneous
  Country: US (occurrence: None)
  Receive Date: 20160323
  Receipt Date: 20160323
  Transmission Date: 20160526
  Serious: Yes (Death)
  Sender: FDA-Public Use
  Company Number: None

PATIENT
  Age: 60 Year
  Sex: Female

DRUGS (14)
  1. WARFARIN [Concomitant]
     Active Substance: WARFARIN
  2. LOVASTATIN. [Concomitant]
     Active Substance: LOVASTATIN
  3. OMEPRAZOLE. [Concomitant]
     Active Substance: OMEPRAZOLE
  4. DIGOXIN. [Concomitant]
     Active Substance: DIGOXIN
  5. CALCITRIOL. [Concomitant]
     Active Substance: CALCITRIOL
  6. ALLOPURINOL. [Concomitant]
     Active Substance: ALLOPURINOL
  7. FERROUS SULFATE [Concomitant]
     Active Substance: FERROUS SULFATE\FERROUS SULFATE, DRIED
  8. FUROSEMIDE. [Concomitant]
     Active Substance: FUROSEMIDE
  9. FLUTICASONE-SALMETEROL DISK [Concomitant]
     Active Substance: FLUTICASONE PROPIONATE\SALMETEROL XINAFOATE
  10. TRACLEER [Suspect]
     Active Substance: BOSENTAN
     Indication: PULMONARY ARTERIAL HYPERTENSION
     Route: 048
     Dates: start: 201509, end: 201603
  11. SILDENAFIL. [Concomitant]
     Active Substance: SILDENAFIL
  12. TIOTROPIUM [Concomitant]
     Active Substance: TIOTROPIUM
  13. LEVOTHYROXINE. [Concomitant]
     Active Substance: LEVOTHYROXINE
  14. DILTIAZEM [Concomitant]
     Active Substance: DILTIAZEM

REACTIONS (1)
  - Death [None]

NARRATIVE: CASE EVENT DATE: 20160301
